FAERS Safety Report 12007467 (Version 1)
Quarter: 2016Q1

REPORT INFORMATION
  Report Type: Report from Study
  Country: US (occurrence: US)
  Receive Date: 20160205
  Receipt Date: 20160205
  Transmission Date: 20160526
  Serious: No
  Sender: FDA-Public Use
  Company Number: US-ABBVIE-15K-163-1439221-00

PATIENT
  Age: 35 Year
  Sex: Female
  Weight: 61.29 kg

DRUGS (2)
  1. CLOBETASOL [Concomitant]
     Active Substance: CLOBETASOL
     Indication: GUTTATE PSORIASIS
  2. HUMIRA [Suspect]
     Active Substance: ADALIMUMAB
     Indication: GUTTATE PSORIASIS
     Route: 058
     Dates: start: 201406, end: 201506

REACTIONS (5)
  - Pain [Recovered/Resolved]
  - Psoriasis [Not Recovered/Not Resolved]
  - Oropharyngeal pain [Recovered/Resolved]
  - Lymphadenopathy [Recovering/Resolving]
  - Pharyngitis [Unknown]

NARRATIVE: CASE EVENT DATE: 201507
